FAERS Safety Report 6090534-9 (Version None)
Quarter: 2009Q1

REPORT INFORMATION
  Report Type: 
  Country: None (occurrence: None)
  Receive Date: 20090224
  Receipt Date: 20090105
  Transmission Date: 20090719
  Serious: No
  Sender: FDA-Public Use
  Company Number: US-ABBOTT-09P-163-0495963-00

PATIENT
  Sex: Male
  Weight: 90.8 kg

DRUGS (4)
  1. SIMCOR [Suspect]
     Indication: BLOOD TRIGLYCERIDES INCREASED
     Dosage: 500/20 MG
     Route: 048
     Dates: start: 20081201, end: 20081201
  2. SOTALOL HCL [Concomitant]
     Indication: ATRIAL FIBRILLATION
     Route: 048
  3. DILTIAZ ER CD [Concomitant]
     Indication: ATRIAL FIBRILLATION
     Route: 048
  4. PROTOXIN [Concomitant]
     Indication: GASTRIC DISORDER
     Route: 048
     Dates: start: 20081101, end: 20081201

REACTIONS (2)
  - ARRHYTHMIA [None]
  - NASOPHARYNGITIS [None]
